FAERS Safety Report 5321622-X (Version None)
Quarter: 2007Q1

REPORT INFORMATION
  Report Type: 
  Country: None (occurrence: None)
  Receive Date: 20070215
  Receipt Date: 20061014
  Transmission Date: 20070707
  Serious: No
  Sender: FDA-Public Use
  Company Number: 200616028BWH

PATIENT
  Age: 60 Year
  Sex: Female

DRUGS (1)
  1. NEXAVAR [Suspect]
     Indication: NEOPLASM MALIGNANT
     Dosage: 400 MG, BID, ORAL
     Route: 048
     Dates: start: 20060914

REACTIONS (3)
  - APHTHOUS STOMATITIS [None]
  - GLOSSODYNIA [None]
  - PLICATED TONGUE [None]
